FAERS Safety Report 6928883-1 (Version None)
Quarter: 2010Q3

REPORT INFORMATION
  Report Type: 
  Country: None (occurrence: None)
  Receive Date: 20100817
  Receipt Date: 20100805
  Transmission Date: 20110219
  Serious: Yes (Other)
  Sender: FDA-Public Use
  Company Number: US-ELI_LILLY_AND_COMPANY-US201007003564

PATIENT
  Sex: Male

DRUGS (1)
  1. GEMZAR [Suspect]
     Dates: start: 20100210, end: 20100401

REACTIONS (1)
  - MALIGNANT NEOPLASM PROGRESSION [None]
